FAERS Safety Report 7530046-6 (Version None)
Quarter: 2011Q2

REPORT INFORMATION
  Report Type: 
  Country: None (occurrence: None)
  Receive Date: 20110607
  Receipt Date: 20110526
  Transmission Date: 20111010
  Serious: Yes (Hospitalization)
  Sender: FDA-Public Use
  Company Number: PHHO2011US09323

PATIENT
  Sex: Male
  Weight: 74 kg

DRUGS (1)
  1. CERTICAN [Suspect]
     Indication: RENAL TRANSPLANT
     Route: 048

REACTIONS (4)
  - RENAL IMPAIRMENT [None]
  - VOMITING [None]
  - NAUSEA [None]
  - DIABETES MELLITUS INADEQUATE CONTROL [None]
